FAERS Safety Report 9642359 (Version 2)
Quarter: 2013Q4

REPORT INFORMATION
  Report Type: Spontaneous
  Country: US (occurrence: US)
  Receive Date: 20131024
  Receipt Date: 20131203
  Transmission Date: 20140711
  Serious: Yes (Hospitalization)
  Sender: FDA-Public Use
  Company Number: US-BIOGENIDEC-2013BI101104

PATIENT
  Sex: Female

DRUGS (3)
  1. TECFIDERA [Suspect]
     Indication: MULTIPLE SCLEROSIS
     Route: 048
     Dates: start: 20130905
  2. NORCO 10/325 [Concomitant]
  3. NAPROXEN [Concomitant]

REACTIONS (3)
  - Flatulence [Recovered/Resolved]
  - Chest pain [Not Recovered/Not Resolved]
  - Underdose [Unknown]
